FAERS Safety Report 16028107 (Version 1)
Quarter: 2019Q1

REPORT INFORMATION
  Report Type: Spontaneous
  Country: US (occurrence: US)
  Receive Date: 20190304
  Receipt Date: 20190304
  Transmission Date: 20190418
  Serious: No
  Sender: FDA-Public Use
  Company Number: US-DRREDDYS-USA/USA/19/0108187

PATIENT
  Sex: Male
  Weight: 80.74 kg

DRUGS (9)
  1. ARICEPT [Concomitant]
     Active Substance: DONEPEZIL HYDROCHLORIDE
     Indication: CEREBROVASCULAR ACCIDENT
     Dosage: 10MG AT BED TIME,STARTED TAKING A COUPLE OF YEARS AGO
     Route: 048
  2. PLAVIX [Concomitant]
     Active Substance: CLOPIDOGREL BISULFATE
     Indication: CEREBROVASCULAR ACCIDENT
     Dosage: STARTED TAKING 7 OR 8 YEARS AGO
     Route: 048
  3. FINASTERIDE 5 MG [Suspect]
     Active Substance: FINASTERIDE
     Indication: BENIGN PROSTATIC HYPERPLASIA
     Dosage: HAS BEEN TAKING FOR ABOUT 5 YEARS
     Route: 048
  4. NAMENDA [Concomitant]
     Active Substance: MEMANTINE HYDROCHLORIDE
     Indication: CEREBROVASCULAR ACCIDENT
     Dosage: HAS BEEN TAKING FOR A COUPLE YEARS
     Route: 048
  5. SIMVASTATIN. [Concomitant]
     Active Substance: SIMVASTATIN
     Indication: CEREBROVASCULAR ACCIDENT
     Dosage: STARTED TAKING A COUPLE OF YEARS AGO
     Route: 048
  6. ZOLOFT [Concomitant]
     Active Substance: SERTRALINE HYDROCHLORIDE
     Indication: OBSESSIVE-COMPULSIVE DISORDER
     Dosage: STARTED TAKING 2 YEARS AGO
     Route: 048
  7. LISINOPRIL. [Concomitant]
     Active Substance: LISINOPRIL
     Indication: BLOOD PRESSURE MEASUREMENT
     Dosage: HAS BEEN TAKING FOR 10 YEARS
     Route: 048
  8. VITAMINS [Concomitant]
     Active Substance: VITAMINS
     Indication: VITAMIN SUPPLEMENTATION
  9. ELMIRON [Concomitant]
     Active Substance: PENTOSAN POLYSULFATE SODIUM
     Indication: CYSTITIS INTERSTITIAL
     Dosage: HAS BEEN TAKING FOR 10 OR 12 YEARS
     Route: 048

REACTIONS (1)
  - Diarrhoea [Unknown]
